FAERS Safety Report 7690545-3 (Version None)
Quarter: 2011Q3

REPORT INFORMATION
  Report Type: 
  Country: None (occurrence: None)
  Receive Date: 20110818
  Receipt Date: 20110429
  Transmission Date: 20111222
  Serious: No
  Sender: FDA-Public Use
  Company Number: US-BAYER-2011-036946

PATIENT
  Sex: Female

DRUGS (1)
  1. MIRENA [Suspect]
     Dosage: 20 MCG/24HR, CONT
     Route: 015
     Dates: start: 20101101, end: 20110429

REACTIONS (6)
  - VAGINAL HAEMORRHAGE [None]
  - WEIGHT DECREASED [None]
  - ANXIETY [None]
  - APHAGIA [None]
  - NERVOUSNESS [None]
  - AMENORRHOEA [None]
